FAERS Safety Report 4678091-2 (Version None)
Quarter: 2005Q2

REPORT INFORMATION
  Report Type: 
  Country: None (occurrence: None)
  Receive Date: 20050531
  Receipt Date: 20050531
  Transmission Date: 20051028
  Serious: No
  Sender: FDA-Public Use
  Company Number: None

PATIENT
  Sex: Female
  Weight: 99.7913 kg

DRUGS (1)
  1. FENTANYL [Suspect]
     Dosage: 25MCG Q 3 DAYS
     Dates: start: 20050518

REACTIONS (3)
  - APPLICATION SITE REACTION [None]
  - PHARMACEUTICAL PRODUCT COMPLAINT [None]
  - RASH [None]
